FAERS Safety Report 11449145 (Version 3)
Quarter: 2015Q3

REPORT INFORMATION
  Report Type: Spontaneous
  Country: US (occurrence: None)
  Receive Date: 20150902
  Receipt Date: 20150925
  Transmission Date: 20151125
  Serious: No
  Sender: FDA-Public Use
  Company Number: US-MDT-ADR-2015-01685

PATIENT
  Age: 58 Year
  Sex: Male

DRUGS (2)
  1. HYDROMORPHONE 10 MG/ML [Suspect]
     Active Substance: HYDROMORPHONE
     Dosage: 1.501 MG/DAY
  2. BACLOFEN INTRATHECAL 100 MCG/ML [Suspect]
     Active Substance: BACLOFEN
     Dosage: 15.01 MCG/DAY

REACTIONS (1)
  - Therapeutic response decreased [None]
